FAERS Safety Report 11992281 (Version 1)
Quarter: 2016Q1

REPORT INFORMATION
  Report Type: Spontaneous
  Country: US (occurrence: US)
  Receive Date: 20160203
  Receipt Date: 20160203
  Transmission Date: 20160526
  Serious: No
  Sender: FDA-Public Use
  Company Number: US-JNJFOC-20160103292

PATIENT
  Age: 84 Year
  Sex: Female
  Weight: 63.5 kg

DRUGS (1)
  1. TYLENOL EXTRA STRENGTH [Suspect]
     Active Substance: ACETAMINOPHEN
     Indication: BACK PAIN
     Dosage: TOOK TOTAL OF 3 CAPLETS.
     Route: 048
     Dates: start: 20160101, end: 20160103

REACTIONS (2)
  - Inappropriate schedule of drug administration [Recovering/Resolving]
  - Rash pruritic [Recovering/Resolving]

NARRATIVE: CASE EVENT DATE: 20160101
